FAERS Safety Report 8942534 (Version 3)
Quarter: 2013Q1

REPORT INFORMATION
  Report Type: Report from Study
  Country: US (occurrence: US)
  Receive Date: 20121204
  Receipt Date: 20130104
  Transmission Date: 20140127
  Serious: Yes (Death, Hospitalization)
  Sender: FDA-Public Use
  Company Number: US-BAYER-2012-124767

PATIENT
  Age: 70 Year
  Sex: Female

DRUGS (2)
  1. STIVARGA [Suspect]
     Indication: COLON CANCER
     Dosage: 160 MG, TOTAL DAILY DOSE
     Route: 048
     Dates: start: 20121120, end: 20121125
  2. STIVARGA [Suspect]
     Indication: COLON CANCER
     Dosage: 80 MG, (40 MG X 2), QD
     Route: 048
     Dates: start: 20121130

REACTIONS (12)
  - Pyrexia [Recovering/Resolving]
  - White blood cell count increased [Recovering/Resolving]
  - Dyspnoea [Recovering/Resolving]
  - Cardiac enzymes increased [None]
  - Dysphonia [None]
  - Gait disturbance [None]
  - Sinusitis [None]
  - Heart rate increased [None]
  - Drug dose omission [None]
  - Hypersensitivity [Recovering/Resolving]
  - Hepatic enzyme increased [Recovering/Resolving]
  - Colon cancer [Fatal]
